FAERS Safety Report 4309185-9 (Version None)
Quarter: 2004Q1

REPORT INFORMATION
  Report Type: 
  Country: None (occurrence: None)
  Receive Date: 20040301
  Receipt Date: 20031203
  Transmission Date: 20041129
  Serious: Yes (Life-Threatening)
  Sender: FDA-Public Use
  Company Number: A04200300825

PATIENT
  Age: 53 Year
  Sex: Male

DRUGS (4)
  1. ELOXATIN [Suspect]
     Indication: COLORECTAL CANCER METASTATIC
     Dosage: 85 MG/M2 OTHER (CUMULATIVE DOSE: 765 MG/M2 ; INTRAVENOUS DRIP (15 MINS - TIME TO ONSET: 30 MINS)
     Route: 041
     Dates: start: 20030708, end: 20030708
  2. ZOFRAN [Concomitant]
  3. DEXAMETHASONE [Concomitant]
  4. VITAMIN B6 (VITAMIN B6) [Concomitant]

REACTIONS (1)
  - ANAPHYLACTIC SHOCK [None]
